FAERS Safety Report 26204107 (Version 1)
Quarter: 2025Q4

REPORT INFORMATION
  Report Type: Spontaneous
  Country: BR (occurrence: BR)
  Receive Date: 20251226
  Receipt Date: 20251226
  Transmission Date: 20260118
  Serious: Yes (Other)
  Sender: NOVARTIS
  Company Number: BR-002147023-NVSC2025BR196070

PATIENT
  Age: 61 Year
  Sex: Female
  Weight: 70 kg

DRUGS (4)
  1. KISQALI [Suspect]
     Active Substance: RIBOCICLIB SUCCINATE
     Indication: Breast cancer metastatic
     Dosage: 200 MG (21 TABLETS) (DO SE COM REV CT BL AL PLAS TRANS X 21) (3 TO 2 TABLETS PER DAY), 3 TO 2  TABLE
     Route: 065
     Dates: start: 202408
  2. KISQALI [Suspect]
     Active Substance: RIBOCICLIB SUCCINATE
     Indication: Metastases to liver
     Dosage: 3 DOSAGE FORM, QD
     Route: 065
  3. LETROZOLE [Suspect]
     Active Substance: LETROZOLE
     Indication: Breast cancer metastatic
     Dosage: UNK
     Route: 048
  4. LETROZOLE [Suspect]
     Active Substance: LETROZOLE
     Indication: Metastases to liver

REACTIONS (3)
  - Immunosuppression [Unknown]
  - Fatigue [Unknown]
  - Neutrophil count decreased [Unknown]

NARRATIVE: CASE EVENT DATE: 20251201
